FAERS Safety Report 5616706-2 (Version None)
Quarter: 2008Q1

REPORT INFORMATION
  Report Type: 
  Country: None (occurrence: None)
  Receive Date: 20080207
  Receipt Date: 20080124
  Transmission Date: 20080703
  Serious: Yes (Other)
  Sender: FDA-Public Use
  Company Number: PHHY2008JP01167

PATIENT
  Age: 82 Year
  Sex: Female

DRUGS (3)
  1. DIOVAN [Suspect]
     Dosage: 80MG/DAY
     Route: 048
  2. INDERAL LA [Suspect]
     Dosage: 60MG/DAY
  3. TORSEMIDE [Suspect]
     Dosage: 0.5 DF/ DAY

REACTIONS (2)
  - DIZZINESS [None]
  - LOSS OF CONSCIOUSNESS [None]
